FAERS Safety Report 4423744-4 (Version None)
Quarter: 2004Q3

REPORT INFORMATION
  Report Type: 
  Country: None (occurrence: None)
  Receive Date: 20040806
  Receipt Date: 20040727
  Transmission Date: 20050211
  Serious: Yes (Hospitalization)
  Sender: FDA-Public Use
  Company Number: 2004223230DE

PATIENT
  Age: 56 Year
  Sex: 0
  Weight: 58 kg

DRUGS (6)
  1. FARMORUBICIN (EPIRUBICIN HYDROCHLORIDE) SOLUTION, STERILE [Suspect]
     Indication: BREAST CANCER
     Dosage: 820 MG, CYCLIC, IV
     Route: 042
     Dates: start: 20030528, end: 20030528
  2. FARMORUBICIN (EPIRUBICIN HYDROCHLORIDE) SOLUTION, STERILE [Suspect]
     Indication: BREAST CANCER
     Dosage: 820 MG, CYCLIC, IV
     Route: 042
     Dates: start: 20030604, end: 20030604
  3. FLUOROURACIL [Suspect]
     Indication: BREAST CANCER
     Dosage: 98 MG, CYCLIC, IV
     Route: 042
     Dates: start: 20030528, end: 20030528
  4. FLUOROURACIL [Suspect]
     Indication: BREAST CANCER
     Dosage: 98 MG, CYCLIC, IV
     Route: 042
     Dates: start: 20030604, end: 20030604
  5. CYCLOPHOSPHAMIDE [Suspect]
     Indication: BREAST CANCER
     Dosage: 125 MG, DAILY, CYCLIC, ORAL
     Route: 048
     Dates: start: 20030528
  6. NEUPOGEN [Concomitant]

REACTIONS (2)
  - LEUKOPENIA [None]
  - PYREXIA [None]
